FAERS Safety Report 9338826 (Version 2)
Quarter: 2013Q2

REPORT INFORMATION
  Report Type: Spontaneous
  Country: JP (occurrence: JP)
  Receive Date: 20130610
  Receipt Date: 20130618
  Transmission Date: 20140414
  Serious: Yes (Other)
  Sender: FDA-Public Use
  Company Number: JP-MPIJNJ-2013-04534

PATIENT
  Sex: 0

DRUGS (5)
  1. VELCADE [Suspect]
     Indication: PLASMA CELL MYELOMA
     Dosage: 0.7 MG/M2, UNK
     Route: 042
  2. VELCADE [Suspect]
     Dosage: 1.0 MG/M2, UNK
     Route: 042
  3. VELCADE [Suspect]
     Dosage: 1.3 MG/M2, UNK
     Route: 042
  4. MELPHALAN [Suspect]
     Indication: PLASMA CELL MYELOMA
     Dosage: 9 MG/M2, UNK
     Route: 065
  5. PREDNISOLONE [Suspect]
     Indication: PLASMA CELL MYELOMA
     Dosage: 60 MG/M2, UNK
     Route: 065

REACTIONS (1)
  - Hyperglycaemia [Unknown]
